FAERS Safety Report 11188901 (Version 3)
Quarter: 2015Q3

REPORT INFORMATION
  Report Type: Spontaneous
  Country: AU (occurrence: AU)
  Receive Date: 20150615
  Receipt Date: 20150826
  Transmission Date: 20151125
  Serious: Yes (Hospitalization)
  Sender: FDA-Public Use
  Company Number: AU-CELGENE-AUS-2015062093

PATIENT
  Age: 62 Year
  Sex: Female

DRUGS (28)
  1. VALTREX [Concomitant]
     Active Substance: VALACYCLOVIR HYDROCHLORIDE
     Indication: PRODUCT USED FOR UNKNOWN INDICATION
     Route: 048
  2. DEXAMETHASONE. [Suspect]
     Active Substance: DEXAMETHASONE
     Route: 041
     Dates: start: 20150530, end: 20150530
  3. CRESTOR [Concomitant]
     Active Substance: ROSUVASTATIN CALCIUM
     Indication: PRODUCT USED FOR UNKNOWN INDICATION
     Route: 048
  4. G-CSF [Concomitant]
     Active Substance: GRANULOCYTE COLONY-STIMULATING FACTOR NOS
     Dosage: 5 MILLIGRAM
     Route: 058
     Dates: start: 20010505, end: 20010516
  5. G-CSF [Concomitant]
     Active Substance: GRANULOCYTE COLONY-STIMULATING FACTOR NOS
     Route: 058
     Dates: start: 20031024, end: 20031101
  6. DEXAMETHASONE. [Suspect]
     Active Substance: DEXAMETHASONE
     Dosage: 1285714.2857
     Route: 048
     Dates: start: 20030601
  7. DEXAMETHASONE. [Suspect]
     Active Substance: DEXAMETHASONE
     Route: 048
     Dates: start: 20030723, end: 20030726
  8. DEXAMETHASONE. [Suspect]
     Active Substance: DEXAMETHASONE
     Route: 048
     Dates: start: 20031021, end: 20031022
  9. HARTMANNS [Concomitant]
     Indication: ADVERSE EVENT
     Route: 041
     Dates: start: 20150531, end: 20150531
  10. G-CSF [Concomitant]
     Active Substance: GRANULOCYTE COLONY-STIMULATING FACTOR NOS
     Dosage: 5 MILLIGRAM
     Route: 058
     Dates: start: 20010305, end: 20010313
  11. DEXAMETHASONE. [Suspect]
     Active Substance: DEXAMETHASONE
     Route: 048
     Dates: start: 20030825, end: 20030828
  12. PREDNISONE. [Concomitant]
     Active Substance: PREDNISONE
     Route: 048
     Dates: start: 20140718
  13. PREDNISONE. [Concomitant]
     Active Substance: PREDNISONE
     Route: 048
     Dates: start: 20140719, end: 20140723
  14. COVERSYL [Concomitant]
     Active Substance: PERINDOPRIL
     Indication: PRODUCT USED FOR UNKNOWN INDICATION
     Route: 048
  15. G-CSF [Concomitant]
     Active Substance: GRANULOCYTE COLONY-STIMULATING FACTOR NOS
     Indication: PRODUCT USED FOR UNKNOWN INDICATION
     Dosage: 5 MILLIGRAM
     Route: 058
     Dates: start: 20010304
  16. PREDNISONE. [Concomitant]
     Active Substance: PREDNISONE
     Indication: IMMUNE THROMBOCYTOPENIC PURPURA
     Route: 048
     Dates: start: 20000719, end: 20001210
  17. ASPIRIN. [Concomitant]
     Active Substance: ASPIRIN
     Indication: PRODUCT USED FOR UNKNOWN INDICATION
     Dosage: 13.5 GRAM
     Route: 048
  18. PREDNISONE. [Concomitant]
     Active Substance: PREDNISONE
     Indication: PLASMA CELL MYELOMA
     Dosage: 50MG WITH TAPERING DECREASE TO 1MG
     Route: 048
     Dates: start: 20140724, end: 20150525
  19. DEXAMETHASONE. [Suspect]
     Active Substance: DEXAMETHASONE
     Indication: PLASMA CELL MYELOMA
     Dosage: STARTING DOSE 40MG, CURRENT DOSE 8MG
     Route: 048
     Dates: start: 20131108
  20. DEXAMETHASONE. [Suspect]
     Active Substance: DEXAMETHASONE
     Dosage: 5 MILLIGRAM
     Route: 048
     Dates: start: 20010502, end: 20010505
  21. GLUCOSAMINE [Concomitant]
     Active Substance: GLUCOSAMINE
     Indication: PRODUCT USED FOR UNKNOWN INDICATION
     Route: 048
  22. PREDNISONE. [Concomitant]
     Active Substance: PREDNISONE
     Route: 048
     Dates: start: 20031106
  23. PREDNISONE. [Concomitant]
     Active Substance: PREDNISONE
     Route: 048
     Dates: start: 20031113, end: 20031126
  24. PREDNISONE. [Concomitant]
     Active Substance: PREDNISONE
     Route: 048
     Dates: start: 20031127, end: 20040210
  25. REVLIMID [Suspect]
     Active Substance: LENALIDOMIDE
     Indication: PLASMA CELL MYELOMA
     Route: 048
     Dates: start: 20131108, end: 20140710
  26. AMITRIPTYLINE [Concomitant]
     Active Substance: AMITRIPTYLINE
     Indication: PRODUCT USED FOR UNKNOWN INDICATION
     Route: 048
     Dates: start: 20150522
  27. G-CSF [Concomitant]
     Active Substance: GRANULOCYTE COLONY-STIMULATING FACTOR NOS
     Route: 058
     Dates: start: 2003, end: 20030829
  28. PREDNISONE. [Concomitant]
     Active Substance: PREDNISONE
     Dosage: WITH TAPERING DECREASE TO 1MG.
     Route: 048
     Dates: start: 20140724, end: 20150525

REACTIONS (1)
  - Inguinal hernia [Recovered/Resolved]

NARRATIVE: CASE EVENT DATE: 20150530
